FAERS Safety Report 21251236 (Version 3)
Quarter: 2022Q3

REPORT INFORMATION
  Report Type: Spontaneous
  Country: CH (occurrence: CH)
  Receive Date: 20220825
  Receipt Date: 20220930
  Transmission Date: 20221027
  Serious: Yes (Other)
  Sender: FDA-Public Use
  Company Number: CH-SM-2022-18407

PATIENT
  Age: 73 Year
  Sex: Female

DRUGS (4)
  1. OPDIVO [Suspect]
     Active Substance: NIVOLUMAB
     Indication: Adenocarcinoma of colon
     Dosage: CYCLICAL
     Route: 041
     Dates: start: 20200219, end: 20200424
  2. OPDIVO [Suspect]
     Active Substance: NIVOLUMAB
     Dosage: CYCLICAL
     Route: 041
     Dates: start: 20200626, end: 20220815
  3. OPDIVO [Suspect]
     Active Substance: NIVOLUMAB
     Route: 065
     Dates: start: 20200626, end: 20220503
  4. YERVOY [Suspect]
     Active Substance: IPILIMUMAB
     Indication: Adenocarcinoma of colon
     Dosage: CYCLICAL, Q3W (EVERY 3 WEEK)
     Route: 041
     Dates: start: 20200219, end: 20200424

REACTIONS (1)
  - Chronic gastritis [Unknown]

NARRATIVE: CASE EVENT DATE: 20220519
